FAERS Safety Report 10902228 (Version 1)
Quarter: 2015Q1

REPORT INFORMATION
  Report Type: Spontaneous
  Country: US (occurrence: US)
  Receive Date: 20150310
  Receipt Date: 20150310
  Transmission Date: 20150721
  Serious: Yes (Other)
  Sender: FDA-Public Use
  Company Number: US-BAYER-2015-033440

PATIENT
  Age: 38 Year
  Sex: Female

DRUGS (1)
  1. ACETYLSALICYLIC ACID({=100 MG) [Suspect]
     Active Substance: ASPIRIN

REACTIONS (6)
  - Hypersensitivity vasculitis [Recovered/Resolved]
  - Nasal polyps [None]
  - Urticaria [Recovered/Resolved]
  - Asthma [None]
  - Aspirin-exacerbated respiratory disease [None]
  - Urticaria [None]
